FAERS Safety Report 16462464 (Version 3)
Quarter: 2020Q1

REPORT INFORMATION
  Report Type: Report from Study
  Country: AU (occurrence: AU)
  Receive Date: 20190621
  Receipt Date: 20200312
  Transmission Date: 20200409
  Serious: Yes (Death, Hospitalization)
  Sender: FDA-Public Use
  Company Number: AU-TOLMAR, INC.-2019AU006298

PATIENT
  Age: 77 Year
  Sex: Male

DRUGS (4)
  1. NOTEN [Concomitant]
     Active Substance: ATENOLOL
     Indication: PRODUCT USED FOR UNKNOWN INDICATION
  2. PREDNISOLONE [PREDNISOLONE ACETATE] [Concomitant]
     Indication: PRODUCT USED FOR UNKNOWN INDICATION
  3. XARELTO [Concomitant]
     Active Substance: RIVAROXABAN
     Indication: PRODUCT USED FOR UNKNOWN INDICATION
  4. ELIGARD [Suspect]
     Active Substance: LEUPROLIDE ACETATE
     Indication: PROSTATE CANCER
     Dosage: 22.5 MG, Q3MONTHS
     Route: 058
     Dates: start: 20151214

REACTIONS (4)
  - Death [Fatal]
  - Limb injury [Not Recovered/Not Resolved]
  - Fall [Not Recovered/Not Resolved]
  - Rib fracture [Not Recovered/Not Resolved]

NARRATIVE: CASE EVENT DATE: 2019
